FAERS Safety Report 24729067 (Version 2)
Quarter: 2024Q4

REPORT INFORMATION
  Report Type: Report from Study
  Country: FR (occurrence: FR)
  Receive Date: 20241213
  Receipt Date: 20241231
  Transmission Date: 20250114
  Serious: Yes (Other)
  Sender: AUROBINDO
  Company Number: FR-AMGEN-FRASP2024113743

PATIENT
  Age: 28 Month
  Weight: 10.3 kg

DRUGS (10)
  1. CINACALCET [Suspect]
     Active Substance: CINACALCET
     Indication: Hyperparathyroidism secondary
     Dosage: 0.2 MILLIGRAM/KILOGRAM, ONCE A DAY
     Route: 065
  2. CINACALCET [Suspect]
     Active Substance: CINACALCET
     Dosage: 1.4 MILLIGRAM/KILOGRAM, ONCE A DAY
     Route: 065
  3. CINACALCET [Suspect]
     Active Substance: CINACALCET
     Dosage: 1.2 MILLIGRAM/KILOGRAM, ONCE A DAY
     Route: 065
  4. CINACALCET [Suspect]
     Active Substance: CINACALCET
     Dosage: 1.3 MILLIGRAM/KILOGRAM, ONCE A DAY
     Route: 065
  5. ALFACALCIDOL [Suspect]
     Active Substance: ALFACALCIDOL
     Indication: Vitamin supplementation
     Dosage: 1 MICROGRAM, ONCE A DAY
     Route: 065
  6. ALFACALCIDOL [Suspect]
     Active Substance: ALFACALCIDOL
     Dosage: 1.2 MICROGRAM, ONCE A DAY
     Route: 065
  7. CALCIUM CARBONATE [Concomitant]
     Active Substance: CALCIUM CARBONATE
     Indication: Product used for unknown indication
     Dosage: UNK
     Route: 065
  8. CALCIUM [Concomitant]
     Active Substance: CALCIUM
     Indication: Product used for unknown indication
     Dosage: 3525 MILLIGRAM, ONCE A DAY (3525 MILLIGRAM, QD)
     Route: 065
  9. PHOSPHORUS [Concomitant]
     Active Substance: PHOSPHORUS
     Indication: Product used for unknown indication
     Dosage: 444 MILLIGRAM, ONCE A DAY (444 MILLIGRAM, QD)
     Route: 065
  10. SEVELAMER [Concomitant]
     Active Substance: SEVELAMER
     Indication: Product used for unknown indication
     Dosage: 1.2 MICROGRAM, ONCE A DAY (1.2 MICROGRAM, QD)
     Route: 065

REACTIONS (3)
  - Hypocalcaemia [Unknown]
  - Off label use [Unknown]
  - Drug ineffective [Unknown]
